FAERS Safety Report 26112756 (Version 2)
Quarter: 2025Q4

REPORT INFORMATION
  Report Type: Spontaneous
  Country: US (occurrence: US)
  Receive Date: 20251202
  Receipt Date: 20251219
  Transmission Date: 20260117
  Serious: No
  Sender: SANOFI AVENTIS
  Company Number: US-SA-2025SA325796

PATIENT
  Age: 81 Year
  Sex: Female
  Weight: 42.73 kg

DRUGS (29)
  1. DUPIXENT [Suspect]
     Active Substance: DUPILUMAB
     Indication: Eosinophilic oesophagitis
     Dosage: 2 ML, QW
  2. DUPIXENT [Suspect]
     Active Substance: DUPILUMAB
     Dosage: 300 MG, QW
     Route: 058
  3. BETA GLUCAN [Concomitant]
     Active Substance: BETA GLUCAN
  4. MELATONIN [Concomitant]
     Active Substance: MELATONIN
  5. QUERCETIN [Concomitant]
     Active Substance: QUERCETIN
  6. CURCUMIN [Concomitant]
     Active Substance: CURCUMIN
  7. GLUCOSAMINE SULFATE POTASSIUM CHLORIDE [Concomitant]
     Active Substance: GLUCOSAMINE SULFATE POTASSIUM CHLORIDE
  8. CALCIUM CARBONATE [Concomitant]
     Active Substance: CALCIUM CARBONATE
  9. COENZYME Q10 [Concomitant]
     Active Substance: DIETARY SUPPLEMENT\UBIDECARENONE
  10. GRAPESEED [Concomitant]
  11. AIRSUPRA [Concomitant]
     Active Substance: ALBUTEROL SULFATE\BUDESONIDE
  12. MAGNESIUM GLYCINATE [Concomitant]
     Active Substance: MAGNESIUM GLYCINATE
  13. FAMOTIDINE [Concomitant]
     Active Substance: FAMOTIDINE
  14. BONE UP [Concomitant]
  15. LACTOBACILLUS ACIDOPHILUS [Concomitant]
     Active Substance: LACTOBACILLUS ACIDOPHILUS
  16. EZETIMIBE [Concomitant]
     Active Substance: EZETIMIBE
  17. ESSENTIAL AMINO ACID MIX [Concomitant]
  18. RECLAST [Concomitant]
     Active Substance: ZOLEDRONIC ACID
  19. COLLAGENASE [Concomitant]
     Active Substance: COLLAGENASE CLOSTRIDIUM HISTOLYTICUM
  20. VITAMIN C [Concomitant]
     Active Substance: ASCORBIC ACID
  21. ALLEGRA ALLERGY [Concomitant]
     Active Substance: FEXOFENADINE HYDROCHLORIDE
  22. VITAMIN D3 K2 [Concomitant]
  23. LICORICE [Concomitant]
     Active Substance: LICORICE
  24. MULTAQ [Concomitant]
     Active Substance: DRONEDARONE
  25. SIMETHICONE (DIMETHICONE) [Concomitant]
     Active Substance: DIMETHICONE
  26. DOCUSATE SODIUM [Concomitant]
     Active Substance: DOCUSATE SODIUM
  27. GINGER [Concomitant]
     Active Substance: GINGER
  28. EOHILIA [Concomitant]
     Active Substance: BUDESONIDE
     Dosage: UNK
  29. ALBUTEROL SULFATE [Concomitant]
     Active Substance: ALBUTEROL SULFATE
     Dosage: UNK

REACTIONS (9)
  - Exposure to household chemicals [Unknown]
  - Rhinorrhoea [Unknown]
  - Throat tightness [Unknown]
  - Exposure via inhalation [Unknown]
  - Eyelid infection [Unknown]
  - Balance disorder [Unknown]
  - Erythema of eyelid [Unknown]
  - Pruritus [Unknown]
  - Injection site swelling [Unknown]

NARRATIVE: CASE EVENT DATE: 20250401
